FAERS Safety Report 4876656-6 (Version None)
Quarter: 2006Q1

REPORT INFORMATION
  Report Type: 
  Country: None (occurrence: None)
  Receive Date: 20060110
  Receipt Date: 20041026
  Transmission Date: 20060701
  Serious: Yes (Hospitalization)
  Sender: FDA-Public Use
  Company Number: US-MERCK-0410USA03972

PATIENT
  Age: 56 Year
  Sex: Female
  Weight: 88 kg

DRUGS (9)
  1. VIOXX [Suspect]
     Indication: ARTHRITIS
     Route: 048
     Dates: start: 20020101, end: 20030601
  2. GLYBURIDE [Concomitant]
     Route: 065
  3. NEXIUM [Concomitant]
     Route: 065
  4. METFORMIN [Concomitant]
     Route: 065
  5. LIPITOR [Concomitant]
     Route: 065
  6. ALLEGRA [Concomitant]
     Route: 065
  7. ALBUTEROL [Concomitant]
     Route: 065
  8. ASPIRIN [Concomitant]
     Route: 065
  9. TYLENOL [Concomitant]
     Route: 065

REACTIONS (5)
  - ASTHMA [None]
  - CEREBROVASCULAR ACCIDENT [None]
  - CHEST PAIN [None]
  - HEART RATE IRREGULAR [None]
  - TRANSIENT ISCHAEMIC ATTACK [None]
